FAERS Safety Report 12409444 (Version 2)
Quarter: 2016Q2

REPORT INFORMATION
  Report Type: Spontaneous
  Country: US (occurrence: US)
  Receive Date: 20160526
  Receipt Date: 20160617
  Transmission Date: 20160815
  Serious: No
  Sender: FDA-Public Use
  Company Number: US-ELI_LILLY_AND_COMPANY-US201605006841

PATIENT
  Age: 55 Year
  Sex: Male
  Weight: 187 kg

DRUGS (2)
  1. HUMULIN 70/30 [Suspect]
     Active Substance: INSULIN HUMAN
     Indication: TYPE 2 DIABETES MELLITUS
     Dosage: 100 U, TID
     Route: 065
     Dates: start: 201505
  2. BYDUREON [Concomitant]
     Active Substance: EXENATIDE
     Dosage: UNK
     Dates: start: 201603

REACTIONS (4)
  - Diarrhoea [Recovered/Resolved]
  - Pain [Unknown]
  - Weight decreased [Unknown]
  - Abdominal discomfort [Recovered/Resolved]

NARRATIVE: CASE EVENT DATE: 201602
